FAERS Safety Report 4319890-6 (Version None)
Quarter: 2004Q1

REPORT INFORMATION
  Report Type: 
  Country: None (occurrence: None)
  Receive Date: 20040319
  Receipt Date: 20040309
  Transmission Date: 20041129
  Serious: Yes (Hospitalization)
  Sender: FDA-Public Use
  Company Number: PHBS2004FR03463

PATIENT
  Age: 57 Year
  Sex: Male

DRUGS (3)
  1. CYCLOSPORINE [Suspect]
     Indication: LIVER TRANSPLANT
  2. STEROIDS NOS [Suspect]
  3. MYCOPHENOLATE MOFETIL [Suspect]

REACTIONS (8)
  - BACTERIAL SEPSIS [None]
  - CYTOMEGALOVIRUS INFECTION [None]
  - HAEMODIALYSIS [None]
  - HAEMODYNAMIC INSTABILITY [None]
  - PHAEHYPHOMYCOSIS [None]
  - PYREXIA [None]
  - RENAL FAILURE ACUTE [None]
  - SKIN NODULE [None]
